FAERS Safety Report 10610475 (Version 7)
Quarter: 2015Q1

REPORT INFORMATION
  Report Type: Spontaneous
  Country: BR (occurrence: BR)
  Receive Date: 20141126
  Receipt Date: 20150313
  Transmission Date: 20150720
  Serious: Yes (Disabling, Other)
  Sender: FDA-Public Use
  Company Number: BR-ASTRAZENECA-2014SE88255

PATIENT
  Age: 24 Year
  Sex: Female
  Weight: 99 kg

DRUGS (14)
  1. LAMOTRIGINE. [Concomitant]
     Active Substance: LAMOTRIGINE
     Indication: EPILEPSY
     Dates: start: 20150212
  2. GARDENAL [Concomitant]
     Active Substance: PHENOBARBITAL
     Indication: EPILEPSY
     Route: 048
  3. URSACOL [Concomitant]
     Active Substance: URSODIOL
     Indication: CHOLELITHIASIS
     Route: 048
  4. CRANBERRY SACHE [Concomitant]
     Dosage: EVERY MORNING
     Route: 048
  5. GARDENAL [Concomitant]
     Active Substance: PHENOBARBITAL
     Indication: EPILEPSY
     Route: 048
  6. HIXIZINE [Suspect]
     Active Substance: HYDROXYZINE HYDROCHLORIDE
     Indication: HYPERSENSITIVITY
     Route: 065
     Dates: start: 201502
  7. FRISIUM [Concomitant]
     Active Substance: CLOBAZAM
     Indication: EPILEPSY
     Route: 048
  8. LACTULONA [Concomitant]
     Indication: CONSTIPATION
     Dosage: AS REQUIRED
     Route: 048
  9. FRISIUM [Concomitant]
     Active Substance: CLOBAZAM
     Indication: EPILEPSY
     Dosage: 10 MG AS REQUIRED BY MORNING
     Route: 048
  10. GLIFAGE [Suspect]
     Active Substance: METFORMIN HYDROCHLORIDE
     Indication: BLOOD INSULIN ABNORMAL
     Dosage: NON AZ PRODUCT
     Route: 048
  11. TYLENOL [Suspect]
     Active Substance: ACETAMINOPHEN
     Indication: PYREXIA
     Route: 065
     Dates: start: 20150227, end: 201502
  12. VIMPAT [Suspect]
     Active Substance: LACOSAMIDE
     Indication: EPILEPSY
     Route: 065
     Dates: end: 20150211
  13. VANNAIR [Suspect]
     Active Substance: BUDESONIDE\FORMOTEROL FUMARATE DIHYDRATE
     Indication: RESPIRATORY DISORDER
     Dosage: 160/4.5 MCG, 2 INHALATIONS/BID
     Route: 055
     Dates: start: 20141024
  14. AVAMYS [Concomitant]
     Active Substance: FLUTICASONE FUROATE
     Dosage: 2 INHALATIONS/EACH NOSTRIL, AT NIGHT
     Route: 055

REACTIONS (15)
  - Mental disorder [Unknown]
  - Hypersensitivity [Recovering/Resolving]
  - Off label use [Not Recovered/Not Resolved]
  - Injury [Unknown]
  - Epilepsy [Recovering/Resolving]
  - Escherichia urinary tract infection [Recovered/Resolved]
  - Tonsillitis [Recovering/Resolving]
  - Ear infection [Recovering/Resolving]
  - Oxygen saturation decreased [Recovered/Resolved]
  - Somnolence [Recovered/Resolved]
  - Menorrhagia [Recovered/Resolved]
  - Menstruation irregular [Recovered/Resolved]
  - Petechiae [Unknown]
  - Drug administration error [Not Recovered/Not Resolved]
  - Tachycardia [Recovered/Resolved]

NARRATIVE: CASE EVENT DATE: 2013
